FAERS Safety Report 11831009 (Version 4)
Quarter: 2016Q2

REPORT INFORMATION
  Report Type: Report from Study
  Country: ES (occurrence: ES)
  Receive Date: 20151214
  Receipt Date: 20160531
  Transmission Date: 20160815
  Serious: Yes (Hospitalization, Other)
  Sender: FDA-Public Use
  Company Number: PHHO2015ES020235

PATIENT
  Age: 66 Year
  Sex: Male
  Weight: 79.2 kg

DRUGS (2)
  1. CEMIDON [Suspect]
     Active Substance: ISONIAZID
     Indication: LATENT TUBERCULOSIS
     Dosage: 300 MG, QD (C/24 H)
     Route: 048
     Dates: start: 20150903
  2. AIN457 [Suspect]
     Active Substance: SECUKINUMAB
     Indication: PSORIASIS
     Dosage: 300 MG, QMO 9C/4 WEEKS)
     Route: 058
     Dates: start: 20150903

REACTIONS (4)
  - Urinary tract infection [Recovered/Resolved]
  - Aspartate aminotransferase increased [Recovered/Resolved]
  - Sepsis [Recovered/Resolved]
  - Alanine aminotransferase increased [Recovered/Resolved]

NARRATIVE: CASE EVENT DATE: 20151127
